FAERS Safety Report 9479381 (Version 2)
Quarter: 2013Q3

REPORT INFORMATION
  Report Type: Spontaneous
  Country: US (occurrence: US)
  Receive Date: 20130827
  Receipt Date: 20130920
  Transmission Date: 20140515
  Serious: Yes (Hospitalization)
  Sender: FDA-Public Use
  Company Number: US-PFIZER INC-2013242993

PATIENT
  Age: 53 Year
  Sex: Female
  Weight: 140 kg

DRUGS (4)
  1. TORISEL [Suspect]
     Indication: RENAL CELL CARCINOMA
     Dosage: 25 MG, WEEKLY
     Route: 042
  2. TORISEL [Suspect]
     Dosage: 100 MG, 1X/DAY
     Route: 042
     Dates: start: 20130603
  3. METFORMIN [Concomitant]
     Dosage: 500 MG, 1X/DAY
     Route: 048
  4. ALLOPURINOL [Concomitant]
     Dosage: 100 MG, 1X/DAY
     Route: 048

REACTIONS (5)
  - Pulmonary embolism [Unknown]
  - Dyspnoea [Unknown]
  - Perivascular dermatitis [Unknown]
  - Rash [Unknown]
  - Dermatitis [Recovering/Resolving]
